FAERS Safety Report 18474571 (Version 4)
Quarter: 2020Q4

REPORT INFORMATION
  Report Type: Spontaneous
  Country: US (occurrence: US)
  Receive Date: 20201106
  Receipt Date: 20201118
  Transmission Date: 20210114
  Serious: Yes (Death, Life-Threatening, Hospitalization)
  Sender: FDA-Public Use
  Company Number: US-PFIZER INC-2020432401

PATIENT
  Age: 54 Year
  Sex: Male

DRUGS (18)
  1. KETAMINE [Concomitant]
     Active Substance: KETAMINE
     Indication: ENDOTRACHEAL INTUBATION
     Dosage: UNK
     Route: 042
  2. EPINEPHRINE. [Suspect]
     Active Substance: EPINEPHRINE
     Indication: CARDIAC ARREST
     Dosage: UNK
     Route: 040
  3. VASOPRESSIN. [Suspect]
     Active Substance: VASOPRESSIN
     Indication: VENTRICULAR FIBRILLATION
     Dosage: UNK
     Route: 042
  4. INSULIN GLARGINE [Suspect]
     Active Substance: INSULIN GLARGINE
     Indication: EVIDENCE BASED TREATMENT
     Dosage: UNK
     Route: 042
  5. VASOPRESSIN. [Suspect]
     Active Substance: VASOPRESSIN
     Indication: CARDIAC ARREST
  6. NALOXONE [Concomitant]
     Active Substance: NALOXONE
     Indication: CARDIAC ARREST
  7. SODIUM BICARBONATE. [Concomitant]
     Active Substance: SODIUM BICARBONATE
     Indication: EVIDENCE BASED TREATMENT
     Dosage: UNK
     Route: 042
  8. NOREPINEPHRINE BITARTRATE. [Suspect]
     Active Substance: NOREPINEPHRINE BITARTRATE
     Indication: VENTRICULAR FIBRILLATION
     Dosage: UNK
     Route: 042
  9. NALOXONE [Concomitant]
     Active Substance: NALOXONE
     Indication: VENTRICULAR FIBRILLATION
     Dosage: UNK
     Route: 042
  10. AMIODARONE [Concomitant]
     Active Substance: AMIODARONE
     Indication: CARDIAC ARREST
  11. ROCURONIUM [Concomitant]
     Active Substance: ROCURONIUM BROMIDE
     Indication: ENDOTRACHEAL INTUBATION
     Dosage: UNK
     Route: 042
  12. CALCIUM CHLORIDE. [Suspect]
     Active Substance: CALCIUM CHLORIDE
     Indication: VENTRICULAR FIBRILLATION
     Dosage: UNK
     Route: 042
  13. CALCIUM CHLORIDE. [Suspect]
     Active Substance: CALCIUM CHLORIDE
     Indication: CARDIAC ARREST
  14. NOREPINEPHRINE BITARTRATE. [Suspect]
     Active Substance: NOREPINEPHRINE BITARTRATE
     Indication: CARDIAC ARREST
  15. DEXTROSE. [Suspect]
     Active Substance: DEXTROSE
     Indication: EVIDENCE BASED TREATMENT
     Dosage: UNK
     Route: 042
  16. EPINEPHRINE. [Suspect]
     Active Substance: EPINEPHRINE
     Indication: VENTRICULAR FIBRILLATION
     Dosage: UNK (CONTINUOUS INFUSION)
     Route: 042
  17. AMIODARONE [Concomitant]
     Active Substance: AMIODARONE
     Indication: VENTRICULAR FIBRILLATION
     Dosage: UNK
     Route: 042
  18. ASPIRIN [ACETYLSALICYLIC ACID] [Concomitant]
     Active Substance: ASPIRIN
     Dosage: UNK
     Route: 054

REACTIONS (10)
  - Anuria [Unknown]
  - Arrhythmia [Fatal]
  - Metabolic alkalosis [Unknown]
  - Hypokalaemia [Unknown]
  - Hypertension [Unknown]
  - Hypercalcaemia [Recovered/Resolved]
  - Renal failure [Unknown]
  - General physical health deterioration [Unknown]
  - Pseudoaldosteronism [Unknown]
  - Rhabdomyolysis [Unknown]
